FAERS Safety Report 9419371 (Version 2)
Quarter: 2013Q3

REPORT INFORMATION
  Report Type: Spontaneous
  Country: US (occurrence: US)
  Receive Date: 20130725
  Receipt Date: 20130809
  Transmission Date: 20140515
  Serious: No
  Sender: FDA-Public Use
  Company Number: US-009507513-1307USA014138

PATIENT
  Age: 65 Year
  Sex: Male
  Weight: 76.19 kg

DRUGS (1)
  1. MIRALAX [Suspect]
     Indication: CONSTIPATION
     Dosage: UNK, QD
     Route: 048
     Dates: start: 20130709, end: 20130713

REACTIONS (4)
  - Abdominal distension [Recovered/Resolved]
  - Abdominal pain upper [Unknown]
  - Malaise [Unknown]
  - Drug ineffective [Unknown]
